FAERS Safety Report 7489793-7 (Version None)
Quarter: 2011Q2

REPORT INFORMATION
  Report Type: 
  Country: None (occurrence: None)
  Receive Date: 20110519
  Receipt Date: 20110510
  Transmission Date: 20111010
  Serious: Yes (Other)
  Sender: FDA-Public Use
  Company Number: US-BRISTOL-MYERS SQUIBB COMPANY-15730336

PATIENT
  Age: 70 Year
  Sex: Male

DRUGS (4)
  1. ONGLYZA [Suspect]
     Indication: DIABETES MELLITUS
     Dosage: FOR 1 WEEK
     Route: 048
  2. SIMVASTATIN [Concomitant]
  3. LISINOPRIL [Suspect]
  4. METFORMIN HCL [Concomitant]

REACTIONS (1)
  - LOCALISED OEDEMA [None]
